FAERS Safety Report 16321128 (Version 1)
Quarter: 2019Q2

REPORT INFORMATION
  Report Type: Spontaneous
  Country: US (occurrence: US)
  Receive Date: 20190510
  Receipt Date: 20190510
  Transmission Date: 20190711
  Serious: No
  Sender: FDA-Public Use
  Company Number: None

PATIENT
  Age: 30 Year
  Sex: Female

DRUGS (1)
  1. TOBI PODHALER [Suspect]
     Active Substance: TOBRAMYCIN
     Indication: CYSTIC FIBROSIS

REACTIONS (7)
  - Chest discomfort [None]
  - Thirst [None]
  - Headache [None]
  - Disturbance in attention [None]
  - Chromaturia [None]
  - Arthralgia [None]
  - Influenza like illness [None]

NARRATIVE: CASE EVENT DATE: 20190510
